FAERS Safety Report 6080744-9 (Version None)
Quarter: 2009Q1

REPORT INFORMATION
  Report Type: 
  Country: None (occurrence: None)
  Receive Date: 20090217
  Receipt Date: 20090209
  Transmission Date: 20090719
  Serious: Yes (Other)
  Sender: FDA-Public Use
  Company Number: IT-TEVA-185434ISR

PATIENT
  Age: 39 Year
  Sex: Female

DRUGS (2)
  1. CARBOPLATIN [Suspect]
  2. THIOTEPA [Suspect]

REACTIONS (1)
  - NEUROLOGICAL EXAMINATION ABNORMAL [None]
